FAERS Safety Report 9250410 (Version 11)
Quarter: 2018Q3

REPORT INFORMATION
  Report Type: Report from Study
  Country: DE (occurrence: DE)
  Receive Date: 20130424
  Receipt Date: 20180723
  Transmission Date: 20181010
  Serious: Yes (Death, Life-Threatening, Hospitalization, Other)
  Sender: FDA-Public Use
  Company Number: DE-ROCHE-1217921

PATIENT
  Age: 66 Year
  Sex: Male
  Weight: 67 kg

DRUGS (12)
  1. PEMETREXED. [Suspect]
     Active Substance: PEMETREXED
     Indication: BRONCHIAL CARCINOMA
     Route: 042
     Dates: start: 20130419, end: 20130419
  2. BEVACIZUMAB. [Suspect]
     Active Substance: BEVACIZUMAB
     Indication: BRONCHIAL CARCINOMA
     Route: 042
     Dates: start: 20130419, end: 20130419
  3. VITAMIN B12 [Concomitant]
     Active Substance: CYANOCOBALAMIN
     Route: 058
     Dates: start: 20130410
  4. INSULIN [Concomitant]
     Active Substance: INSULIN NOS
  5. IBUPROFEN. [Concomitant]
     Active Substance: IBUPROFEN
     Indication: BACK PAIN
     Route: 065
     Dates: end: 201304
  6. CARMEN (GERMANY) [Concomitant]
     Active Substance: LERCANIDIPINE HYDROCHLORIDE
     Indication: HYPERTENSION
     Route: 065
  7. GRANISETRON [Concomitant]
     Active Substance: GRANISETRON
     Indication: NAUSEA
     Route: 048
     Dates: start: 20130419
  8. FOLATE [Concomitant]
     Active Substance: FOLATE SODIUM
     Route: 048
  9. CARBOPLATIN. [Suspect]
     Active Substance: CARBOPLATIN
     Indication: BRONCHIAL CARCINOMA
     Route: 042
     Dates: start: 20130419, end: 20130419
  10. LEVEMIR [Concomitant]
     Active Substance: INSULIN DETEMIR
     Indication: TYPE 2 DIABETES MELLITUS
  11. ZOMETA [Concomitant]
     Active Substance: ZOLEDRONIC ACID
     Indication: METASTASES TO BONE
     Route: 042
     Dates: start: 20130419
  12. DEXAMETHASON [Concomitant]
     Active Substance: DEXAMETHASONE
     Route: 048
     Dates: start: 20130418, end: 20130420

REACTIONS (14)
  - Pneumonia [Fatal]
  - Hypertensive crisis [Recovered/Resolved]
  - Urinary tract infection [Recovering/Resolving]
  - Coronary artery disease [Recovering/Resolving]
  - Leukopenia [Unknown]
  - Laryngeal leukoplakia [Not Recovered/Not Resolved]
  - Liver function test increased [Unknown]
  - Acute myocardial infarction [Recovered/Resolved]
  - Blood lactate dehydrogenase increased [Unknown]
  - Transaminases increased [Unknown]
  - Diarrhoea [Unknown]
  - Oral candidiasis [Recovered/Resolved]
  - Laryngitis [Unknown]
  - Thrombocytopenia [Unknown]

NARRATIVE: CASE EVENT DATE: 20130420
